FAERS Safety Report 21104280 (Version 5)
Quarter: 2022Q4

REPORT INFORMATION
  Report Type: Spontaneous
  Country: US (occurrence: US)
  Receive Date: 20220720
  Receipt Date: 20221012
  Transmission Date: 20230113
  Serious: No
  Sender: FDA-Public Use
  Company Number: US-JNJFOC-20220726409

PATIENT
  Age: 52 Year
  Sex: Female
  Weight: 70.370 kg

DRUGS (1)
  1. TREMFYA [Suspect]
     Active Substance: GUSELKUMAB
     Indication: Psoriatic arthropathy
     Route: 058
     Dates: start: 202202

REACTIONS (7)
  - Device issue [Unknown]
  - Product dose omission issue [Unknown]
  - Feeling abnormal [Unknown]
  - Needle issue [Unknown]
  - Feeling abnormal [Unknown]
  - Pain [Unknown]
  - Drug delivery system malfunction [Unknown]

NARRATIVE: CASE EVENT DATE: 20220713
